FAERS Safety Report 25532102 (Version 1)
Quarter: 2025Q3

REPORT INFORMATION
  Report Type: Report from Study
  Country: CA (occurrence: CA)
  Receive Date: 20250709
  Receipt Date: 20250709
  Transmission Date: 20251021
  Serious: Yes (Other)
  Sender: BIOCON
  Company Number: CA-MIMS-BCONMC-15529

PATIENT

DRUGS (1)
  1. HULIO [Suspect]
     Active Substance: ADALIMUMAB-FKJP
     Indication: Rheumatoid arthritis
     Route: 058

REACTIONS (7)
  - Rheumatoid arthritis [Unknown]
  - Fatigue [Unknown]
  - Muscular weakness [Unknown]
  - Asthenia [Unknown]
  - Malaise [Unknown]
  - Hypoaesthesia [Unknown]
  - Drug ineffective [Unknown]
